FAERS Safety Report 9041261 (Version 1)
Quarter: 2013Q1

REPORT INFORMATION
  Report Type: Spontaneous
  Country: US (occurrence: None)
  Receive Date: 20130114
  Receipt Date: 20130114
  Transmission Date: 20140127
  Serious: Yes (Death)
  Sender: FDA-Public Use
  Company Number: 1212-764

PATIENT
  Sex: Male

DRUGS (1)
  1. EYLEA [Suspect]
     Dates: start: 20120322

REACTIONS (1)
  - Death [None]
